FAERS Safety Report 19718072 (Version 1)
Quarter: 2021Q3

REPORT INFORMATION
  Report Type: Spontaneous
  Country: IN (occurrence: IN)
  Receive Date: 20210818
  Receipt Date: 20210818
  Transmission Date: 20211014
  Serious: Yes (Death)
  Sender: FDA-Public Use
  Company Number: IN-PFIZER INC-2021115030

PATIENT
  Age: 32 Year
  Sex: Female

DRUGS (4)
  1. SHELCAL OS [Concomitant]
     Dosage: 500 (UNSPECIFIED UNIT) 1?0?1
  2. PALBACE [Suspect]
     Active Substance: PALBOCICLIB
     Indication: BREAST CANCER METASTATIC
     Dosage: 125 MG, 1X/DAY
     Route: 048
     Dates: start: 20200604
  3. LETROZOLE. [Concomitant]
     Active Substance: LETROZOLE
     Dosage: 2.5 (UNSPECIFIED UNIT) 1?0?0
  4. PALBACE [Suspect]
     Active Substance: PALBOCICLIB
     Dosage: 125 MG, 1X/DAY
     Route: 048
     Dates: start: 20200518, end: 20210408

REACTIONS (1)
  - Death [Fatal]

NARRATIVE: CASE EVENT DATE: 20210408
